FAERS Safety Report 18437774 (Version 10)
Quarter: 2021Q2

REPORT INFORMATION
  Report Type: Report from Study
  Country: US (occurrence: US)
  Receive Date: 20201028
  Receipt Date: 20210531
  Transmission Date: 20210717
  Serious: Yes (Hospitalization, Other)
  Sender: FDA-Public Use
  Company Number: US-SHIRE-US201930487AA

PATIENT
  Age: 21 Year
  Sex: Female

DRUGS (23)
  1. C1 INHIBITOR (HUMAN) [Suspect]
     Active Substance: HUMAN C1-ESTERASE INHIBITOR
     Dosage: 1500 INTERNATIONAL UNIT, 3/WEEK
     Route: 042
     Dates: start: 20160822
  2. C1 INHIBITOR (HUMAN) [Suspect]
     Active Substance: HUMAN C1-ESTERASE INHIBITOR
     Dosage: 1500 INTERNATIONAL UNIT, 3/WEEK
     Route: 042
     Dates: start: 20160825
  3. C1 INHIBITOR (HUMAN) [Suspect]
     Active Substance: HUMAN C1-ESTERASE INHIBITOR
     Dosage: 1500 INTERNATIONAL UNIT, 3/WEEK
     Route: 042
     Dates: start: 20160822
  4. C1 INHIBITOR (HUMAN) [Suspect]
     Active Substance: HUMAN C1-ESTERASE INHIBITOR
     Dosage: 1500 INTERNATIONAL UNIT, 3/WEEK
     Route: 042
     Dates: start: 20160825
  5. FIRAZYR [Suspect]
     Active Substance: ICATIBANT ACETATE
     Indication: HEREDITARY ANGIOEDEMA
     Dosage: 30 MILLIGRAM, AS REQD
     Route: 058
     Dates: start: 20161006
  6. FIRAZYR [Suspect]
     Active Substance: ICATIBANT ACETATE
     Dosage: 30 MILLIGRAM, AS NEEDED
     Route: 058
     Dates: start: 201807
  7. FIRAZYR [Suspect]
     Active Substance: ICATIBANT ACETATE
     Dosage: 30 MILLIGRAM, AS NEEDED
     Route: 058
     Dates: start: 201807
  8. FIRAZYR [Suspect]
     Active Substance: ICATIBANT ACETATE
     Dosage: 30 MILLIGRAM
     Route: 058
     Dates: start: 202004
  9. C1 INHIBITOR (HUMAN) [Suspect]
     Active Substance: HUMAN C1-ESTERASE INHIBITOR
     Indication: IMMUNE SYSTEM DISORDER
     Dosage: 1500 INTERNATIONAL UNIT, 3/WEEK
     Route: 042
     Dates: start: 20160810
  10. C1 INHIBITOR (HUMAN) [Suspect]
     Active Substance: HUMAN C1-ESTERASE INHIBITOR
     Dosage: 1500 INTERNATIONAL UNIT, 3/WEEK
     Route: 042
     Dates: start: 20160825
  11. C1 INHIBITOR (HUMAN) [Suspect]
     Active Substance: HUMAN C1-ESTERASE INHIBITOR
     Indication: IMMUNE SYSTEM DISORDER
     Dosage: 1500 INTERNATIONAL UNIT, 3/WEEK
     Route: 042
     Dates: start: 20160810
  12. FIRAZYR [Suspect]
     Active Substance: ICATIBANT ACETATE
     Indication: IMMUNE SYSTEM DISORDER
     Dosage: 30 MILLIGRAM, AS NEEDED
     Route: 058
     Dates: start: 2016
  13. C1 INHIBITOR (HUMAN) [Suspect]
     Active Substance: HUMAN C1-ESTERASE INHIBITOR
     Indication: IMMUNE SYSTEM DISORDER
     Dosage: 1500 INTERNATIONAL UNIT, 3/WEEK
     Route: 042
     Dates: start: 20160810
  14. C1 INHIBITOR (HUMAN) [Suspect]
     Active Substance: HUMAN C1-ESTERASE INHIBITOR
     Dosage: 1500 INTERNATIONAL UNIT, 3/WEEK
     Route: 042
     Dates: start: 201608
  15. C1 INHIBITOR (HUMAN) [Suspect]
     Active Substance: HUMAN C1-ESTERASE INHIBITOR
     Dosage: 1500 INTERNATIONAL UNIT, 3/WEEK
     Route: 042
     Dates: start: 201608
  16. C1 INHIBITOR (HUMAN) [Suspect]
     Active Substance: HUMAN C1-ESTERASE INHIBITOR
     Dosage: 1500 INTERNATIONAL UNIT, 3/WEEK
     Route: 042
     Dates: start: 20160825
  17. FIRAZYR [Suspect]
     Active Substance: ICATIBANT ACETATE
     Indication: HEREDITARY ANGIOEDEMA
     Dosage: 30 MILLIGRAM, AS REQD
     Route: 058
     Dates: start: 20161006
  18. C1 INHIBITOR (HUMAN) [Suspect]
     Active Substance: HUMAN C1-ESTERASE INHIBITOR
     Dosage: 1500 INTERNATIONAL UNIT, 3/WEEK
     Route: 042
     Dates: start: 20160825
  19. C1 INHIBITOR (HUMAN) [Suspect]
     Active Substance: HUMAN C1-ESTERASE INHIBITOR
     Dosage: 1500 INTERNATIONAL UNIT, 3/WEEK
     Route: 042
     Dates: start: 201608
  20. C1 INHIBITOR (HUMAN) [Suspect]
     Active Substance: HUMAN C1-ESTERASE INHIBITOR
     Dosage: 1500 INTERNATIONAL UNIT, 3/WEEK
     Route: 042
     Dates: start: 20160822
  21. FIRAZYR [Suspect]
     Active Substance: ICATIBANT ACETATE
     Indication: IMMUNE SYSTEM DISORDER
     Dosage: 30 MILLIGRAM, AS NEEDED
     Route: 058
     Dates: start: 2016
  22. C1 INHIBITOR (HUMAN) [Suspect]
     Active Substance: HUMAN C1-ESTERASE INHIBITOR
     Dosage: 1500 INTERNATIONAL UNIT, 3/WEEK
     Route: 042
     Dates: start: 20160825
  23. FIRAZYR [Suspect]
     Active Substance: ICATIBANT ACETATE
     Dosage: 30 MILLIGRAM
     Route: 058
     Dates: start: 202004

REACTIONS (11)
  - Hereditary angioedema [Recovered/Resolved]
  - Neuralgia [Unknown]
  - Post procedural complication [Unknown]
  - Device malfunction [Unknown]
  - Cough [Unknown]
  - Product distribution issue [Unknown]
  - Pain [Unknown]
  - Respiratory tract infection [Unknown]
  - Endometriosis [Unknown]
  - Inappropriate schedule of product administration [Unknown]
  - Incorrect route of product administration [Unknown]

NARRATIVE: CASE EVENT DATE: 20210416
